FAERS Safety Report 7637509-3 (Version None)
Quarter: 2011Q3

REPORT INFORMATION
  Report Type: 
  Country: None (occurrence: None)
  Receive Date: 20110726
  Receipt Date: 20110718
  Transmission Date: 20111222
  Serious: Yes (Other)
  Sender: FDA-Public Use
  Company Number: PHEH2009US03018

PATIENT
  Sex: Male

DRUGS (10)
  1. ZOMETA [Suspect]
  2. REVLIMID [Concomitant]
  3. LISINOPRIL [Concomitant]
  4. ATENOLOL [Concomitant]
  5. AMBIEN [Concomitant]
  6. ARANESP [Concomitant]
  7. LASIX [Concomitant]
  8. RADIOTHERAPY [Concomitant]
  9. DECADRON [Concomitant]
  10. PENICILLIN ^GRUNENTHAL^ [Concomitant]

REACTIONS (24)
  - OSTEONECROSIS OF JAW [None]
  - INFECTION [None]
  - DEFORMITY [None]
  - INSOMNIA [None]
  - MUSCLE SPASMS [None]
  - FATIGUE [None]
  - PANCYTOPENIA [None]
  - RECTAL ULCER [None]
  - MULTIPLE MYELOMA [None]
  - PHYSICAL DISABILITY [None]
  - EMOTIONAL DISTRESS [None]
  - ANAEMIA [None]
  - SPINAL OSTEOARTHRITIS [None]
  - PAIN [None]
  - HYPOAESTHESIA [None]
  - CONJUNCTIVAL HAEMORRHAGE [None]
  - HAEMOPTYSIS [None]
  - SENSORY LOSS [None]
  - OROPHARYNGEAL PAIN [None]
  - TRANSIENT ISCHAEMIC ATTACK [None]
  - ANXIETY [None]
  - NEUROPATHY PERIPHERAL [None]
  - SPINAL COMPRESSION FRACTURE [None]
  - DYSPNOEA EXERTIONAL [None]
